FAERS Safety Report 7941609-8 (Version None)
Quarter: 2011Q4

REPORT INFORMATION
  Report Type: 
  Country: None (occurrence: None)
  Receive Date: 20111122
  Receipt Date: 20111122
  Transmission Date: 20120403
  Serious: Yes (Hospitalization)
  Sender: FDA-Public Use
  Company Number: None

PATIENT
  Sex: Male
  Weight: 81.2 kg

DRUGS (11)
  1. BENICAR [Concomitant]
  2. GLIMEPIRIDE [Concomitant]
  3. NORVASC [Concomitant]
  4. ETOPOSIDE [Suspect]
     Dosage: 200 MG
  5. METFORMIN HCL [Concomitant]
  6. ASPIRIN [Concomitant]
  7. TOPROL-XL [Concomitant]
  8. WELCHOL [Concomitant]
  9. OMEPRAZOLE [Concomitant]
  10. CISPLATIN [Suspect]
     Dosage: 160 MG
  11. DIRLOFENAC [Concomitant]

REACTIONS (4)
  - NAUSEA [None]
  - FEBRILE NEUTROPENIA [None]
  - ASTHENIA [None]
  - VOMITING [None]
